FAERS Safety Report 10063525 (Version 2)
Quarter: 2014Q2

REPORT INFORMATION
  Report Type: Spontaneous
  Country: BR (occurrence: BR)
  Receive Date: 20140407
  Receipt Date: 20140423
  Transmission Date: 20141212
  Serious: Yes (Hospitalization, Other)
  Sender: FDA-Public Use
  Company Number: BR-ELI_LILLY_AND_COMPANY-BR201403009780

PATIENT
  Sex: Female
  Weight: 48 kg

DRUGS (4)
  1. HUMALOG [Suspect]
     Indication: DIABETES MELLITUS
     Dosage: 15 IU, TID
     Route: 058
     Dates: start: 2006
  2. LANTUS [Concomitant]
     Indication: PRODUCT USED FOR UNKNOWN INDICATION
     Dosage: 42 IU, EACH MORNING
     Route: 065
  3. LANTUS [Concomitant]
     Dosage: 15 IU, EACH EVENING
     Route: 065
  4. PURAN T4 [Concomitant]
     Indication: THYROID DISORDER
     Dosage: UNK, UNKNOWN
     Route: 065

REACTIONS (19)
  - Dehydration [Unknown]
  - Blood glucose increased [Unknown]
  - Sinusitis [Unknown]
  - Acidosis [Unknown]
  - Blood glucose increased [Unknown]
  - Blood glucose increased [Unknown]
  - Urinary tract infection [Unknown]
  - Pharyngitis [Unknown]
  - Nervousness [Not Recovered/Not Resolved]
  - Anxiety [Not Recovered/Not Resolved]
  - Bone pain [Unknown]
  - Aphagia [Unknown]
  - Feeling abnormal [Unknown]
  - Drug dose omission [Unknown]
  - Injection site induration [Unknown]
  - Injection site injury [Unknown]
  - Injection site mass [Unknown]
  - Injection site pain [Unknown]
  - Injection site pain [Unknown]
